FAERS Safety Report 11792291 (Version 2)
Quarter: 2016Q1

REPORT INFORMATION
  Report Type: Report from Study
  Country: US (occurrence: US)
  Receive Date: 20151201
  Receipt Date: 20160209
  Transmission Date: 20160525
  Serious: Yes (Hospitalization, Other)
  Sender: FDA-Public Use
  Company Number: US-ROCHE-1670524

PATIENT
  Age: 76 Year
  Sex: Female
  Weight: 57.95 kg

DRUGS (8)
  1. CETUXIMAB [Suspect]
     Active Substance: CETUXIMAB
     Indication: COLORECTAL CANCER METASTATIC
     Dosage: COURSES REPEAT EVERY 28 DAYS
     Route: 042
     Dates: start: 20150909
  2. IMODIUM [Concomitant]
     Active Substance: LOPERAMIDE HYDROCHLORIDE
  3. LOMOTIL (UNITED STATES) [Concomitant]
  4. KCL [Concomitant]
     Active Substance: POTASSIUM CHLORIDE
  5. VEMURAFENIB [Suspect]
     Active Substance: VEMURAFENIB
     Indication: COLORECTAL CANCER METASTATIC
     Dosage: LAST ADMINISTERED DATE: 28/NOV/2015?CYCLE 3
     Route: 048
     Dates: start: 20150909, end: 20151128
  6. ANUSOL SUPPOSITORY (UNITED STATES) [Concomitant]
  7. IRINOTECAN HYDROCHLORIDE. [Suspect]
     Active Substance: IRINOTECAN HYDROCHLORIDE
     Indication: COLORECTAL CANCER METASTATIC
     Dosage: COURSES REPEAT EVERY 28 DAYS
     Route: 042
     Dates: start: 20150909
  8. LEXAPRO [Concomitant]
     Active Substance: ESCITALOPRAM OXALATE

REACTIONS (3)
  - Dehydration [Recovering/Resolving]
  - Anaemia [Recovering/Resolving]
  - Decreased appetite [Recovered/Resolved]

NARRATIVE: CASE EVENT DATE: 20151118
